FAERS Safety Report 5268361-1 (Version None)
Quarter: 2007Q1

REPORT INFORMATION
  Report Type: 
  Country: None (occurrence: None)
  Receive Date: 20070313
  Receipt Date: 20070305
  Transmission Date: 20070707
  Serious: Yes (Other)
  Sender: FDA-Public Use
  Company Number: SOS-2007-003

PATIENT
  Age: 31 Year
  Sex: Male
  Weight: 84.8 kg

DRUGS (4)
  1. ANTABUSE [Suspect]
     Indication: ALCOHOLISM
     Dosage: 250 MG, QD, UNK
     Dates: start: 20061215
  2. CAMPRAL [Suspect]
     Indication: ALCOHOLISM
     Dosage: 666 MG, TID, UNK
     Dates: start: 20061215, end: 20061219
  3. CAMPRAL [Suspect]
     Indication: ALCOHOLISM
     Dosage: 666 MG, TID, UNK
     Dates: start: 20070103, end: 20070108
  4. EFFEXOR [Concomitant]

REACTIONS (5)
  - ABNORMAL BEHAVIOUR [None]
  - COORDINATION ABNORMAL [None]
  - DYSARTHRIA [None]
  - DYSSTASIA [None]
  - GAIT DISTURBANCE [None]
